FAERS Safety Report 11138451 (Version 1)
Quarter: 2015Q2

REPORT INFORMATION
  Report Type: Other
  Country: LB (occurrence: LB)
  Receive Date: 20150527
  Receipt Date: 20150527
  Transmission Date: 20150821
  Serious: Yes (Other)
  Sender: FDA-Public Use
  Company Number: LB-LUPIN PHARMACEUTICALS INC.-2015-01483

PATIENT
  Age: 3 Year
  Sex: Female

DRUGS (4)
  1. LEVETIRACETAM. [Suspect]
     Active Substance: LEVETIRACETAM
     Route: 065
  2. LEVETIRACETAM. [Suspect]
     Active Substance: LEVETIRACETAM
     Route: 065
  3. VALPROATE [Concomitant]
     Active Substance: VALPROATE SODIUM
     Indication: GENERALISED TONIC-CLONIC SEIZURE
     Route: 065
  4. LEVETIRACETAM. [Suspect]
     Active Substance: LEVETIRACETAM
     Indication: GENERALISED TONIC-CLONIC SEIZURE
     Route: 065

REACTIONS (2)
  - Myoclonic epilepsy [Recovered/Resolved]
  - Condition aggravated [Recovered/Resolved]
